FAERS Safety Report 19167766 (Version 1)
Quarter: 2021Q2

REPORT INFORMATION
  Report Type: Spontaneous
  Country: ES (occurrence: ES)
  Receive Date: 20210422
  Receipt Date: 20210422
  Transmission Date: 20210717
  Serious: Yes (Other)
  Sender: FDA-Public Use
  Company Number: NVSC2021ES080122

PATIENT
  Age: 80 Year
  Sex: Male
  Weight: 85 kg

DRUGS (2)
  1. VOTRIENT [Suspect]
     Active Substance: PAZOPANIB HYDROCHLORIDE
     Indication: SKIN ANGIOSARCOMA
     Dosage: 200 MG, Q24H (30 COMPRIMIDOS OF 200 MG CONCENTRATION)
     Route: 048
     Dates: start: 20201126, end: 20201129
  2. VOTRIENT [Suspect]
     Active Substance: PAZOPANIB HYDROCHLORIDE
     Dosage: 400 MG, Q24H (60 COMPRIMIDOS OF 400 MG CONCENTRATION)
     Route: 048
     Dates: start: 20201126, end: 20201129

REACTIONS (6)
  - Diarrhoea [Recovered/Resolved]
  - Liver disorder [Recovered/Resolved]
  - Decreased appetite [Recovered/Resolved]
  - Medication error [Recovered/Resolved]
  - Palpitations [Recovered/Resolved]
  - Asthenia [Recovered/Resolved]

NARRATIVE: CASE EVENT DATE: 20201208
